FAERS Safety Report 7243081-2 (Version None)
Quarter: 2011Q1

REPORT INFORMATION
  Report Type: 
  Country: None (occurrence: None)
  Receive Date: 20110125
  Receipt Date: 20101126
  Transmission Date: 20110831
  Serious: No
  Sender: FDA-Public Use
  Company Number: US-AMGEN-USASP2010006455

PATIENT
  Age: 85 Year
  Sex: Female

DRUGS (10)
  1. XALATAN [Concomitant]
  2. CALCITRIOL [Concomitant]
  3. PROLIA [Suspect]
     Indication: OSTEOPOROSIS POSTMENOPAUSAL
     Dates: start: 20101116
  4. AMLODIPINE [Concomitant]
  5. ATACAND [Concomitant]
  6. SYNTHROID [Concomitant]
  7. PEPCID [Concomitant]
  8. LIPITOR [Concomitant]
  9. COUMADIN [Concomitant]
  10. ACTOS [Concomitant]

REACTIONS (2)
  - HYPOAESTHESIA [None]
  - HEADACHE [None]
